FAERS Safety Report 6255812-9 (Version None)
Quarter: 2009Q3

REPORT INFORMATION
  Report Type: 
  Country: None (occurrence: None)
  Receive Date: 20090703
  Receipt Date: 20090619
  Transmission Date: 20100115
  Serious: Yes (Other)
  Sender: FDA-Public Use
  Company Number: FR-PFIZER INC-2009230646

PATIENT
  Age: 48 Year

DRUGS (3)
  1. RELPAX [Suspect]
     Dosage: UNK
     Dates: start: 20080101
  2. MIRENA [Concomitant]
  3. PARIET [Concomitant]

REACTIONS (1)
  - HYPERPROLACTINAEMIA [None]
